FAERS Safety Report 6649860-4 (Version None)
Quarter: 2010Q1

REPORT INFORMATION
  Report Type: 
  Country: None (occurrence: None)
  Receive Date: 20100325
  Receipt Date: 20100315
  Transmission Date: 20100710
  Serious: Yes (Other)
  Sender: FDA-Public Use
  Company Number: US-BIOGENIDEC-2010BI009246

PATIENT
  Age: 62 Year
  Sex: Male

DRUGS (12)
  1. TYSABRI [Suspect]
     Indication: CROHN'S DISEASE
     Dates: start: 20091021, end: 20100101
  2. PREDNISONE [Concomitant]
     Indication: CROHN'S DISEASE
  3. PREDNISONE [Concomitant]
  4. POTASSIUM CHLORIDE [Concomitant]
     Indication: CROHN'S DISEASE
  5. LOMOTIL [Concomitant]
     Indication: CROHN'S DISEASE
  6. PEPTO-BISMOL [Concomitant]
     Indication: COLONIC STENOSIS
  7. IMODIUM [Concomitant]
     Indication: CROHN'S DISEASE
  8. LASIX [Concomitant]
     Indication: CROHN'S DISEASE
  9. MAXZIDE [Concomitant]
     Indication: CROHN'S DISEASE
  10. MAXZIDE [Concomitant]
  11. APRISO [Concomitant]
     Indication: CROHN'S DISEASE
  12. ZYRTEC [Concomitant]
     Indication: PREMEDICATION

REACTIONS (1)
  - COLONIC STENOSIS [None]
